FAERS Safety Report 18135216 (Version 1)
Quarter: 2020Q3

REPORT INFORMATION
  Report Type: Spontaneous
  Country: DE (occurrence: DE)
  Receive Date: 20200811
  Receipt Date: 20200811
  Transmission Date: 20201103
  Serious: Yes (Hospitalization)
  Sender: FDA-Public Use
  Company Number: NVSC2020DE221593

PATIENT
  Age: 73 Year
  Sex: Female

DRUGS (4)
  1. ACETYLSALICYLIC ACID [Concomitant]
     Active Substance: ASPIRIN
     Indication: PRODUCT USED FOR UNKNOWN INDICATION
     Dosage: 100 MG, QD (1?0?0?0)
     Route: 048
  2. RAMIPRIL HCTZ [Concomitant]
     Active Substance: HYDROCHLOROTHIAZIDE\RAMIPRIL
     Indication: PRODUCT USED FOR UNKNOWN INDICATION
     Dosage: 25|12.5 MG, QD (1?0?0?0)
     Route: 048
  3. METOPROLOL. [Suspect]
     Active Substance: METOPROLOL
     Indication: PRODUCT USED FOR UNKNOWN INDICATION
     Dosage: 23.75 MG (0.5?0?0?0)
     Route: 048
  4. LEVOTHYROXINE NA [Concomitant]
     Active Substance: LEVOTHYROXINE SODIUM
     Indication: PRODUCT USED FOR UNKNOWN INDICATION
     Dosage: 100 UG, QD (1?0?0?0)
     Route: 048

REACTIONS (4)
  - Bradycardia [Unknown]
  - Anxiety [Unknown]
  - Restlessness [Unknown]
  - Angina pectoris [Unknown]
